FAERS Safety Report 4973082-6 (Version None)
Quarter: 2006Q2

REPORT INFORMATION
  Report Type: 
  Country: None (occurrence: None)
  Receive Date: 20060414
  Receipt Date: 20060405
  Transmission Date: 20061013
  Serious: Yes (Other)
  Sender: FDA-Public Use
  Company Number: FR-ROCHE-443592

PATIENT
  Age: 30 Year
  Sex: Male

DRUGS (1)
  1. ROACCUTANE [Suspect]
     Indication: ACNE
     Route: 065
     Dates: start: 20020615

REACTIONS (1)
  - LYMPHOMA [None]
